FAERS Safety Report 24173276 (Version 1)
Quarter: 2024Q3

REPORT INFORMATION
  Report Type: Spontaneous
  Country: GB (occurrence: GB)
  Receive Date: 20240805
  Receipt Date: 20240805
  Transmission Date: 20241016
  Serious: Yes (Other)
  Sender: CHEPLAPHARM
  Company Number: None

PATIENT
  Age: 60 Year
  Sex: Male
  Weight: 64 kg

DRUGS (5)
  1. OLANZAPINE [Suspect]
     Active Substance: OLANZAPINE
     Indication: Hypomania
     Dosage: REDUCED FROM 15 MG TO 10 MG DAILY ON 22 JULY 2024
     Dates: start: 20240517
  2. OLANZAPINE [Suspect]
     Active Substance: OLANZAPINE
     Indication: Hypomania
     Dosage: REDUCED FROM 15 MG TO 10 MG DAILY ON 22 JULY 2024
     Dates: start: 20240722
  3. LITHIUM [Suspect]
     Active Substance: LITHIUM
     Indication: Hypomania
     Dosage: DAILY
  4. AMLODIPINE BESYLATE [Suspect]
     Active Substance: AMLODIPINE BESYLATE
     Indication: Hypertension
  5. BISOPROLOL [Suspect]
     Active Substance: BISOPROLOL\BISOPROLOL FUMARATE
     Indication: Hypertension

REACTIONS (1)
  - Parkinsonism [Not Recovered/Not Resolved]

NARRATIVE: CASE EVENT DATE: 20240723
